FAERS Safety Report 5338884-5 (Version None)
Quarter: 2007Q2

REPORT INFORMATION
  Report Type: 
  Country: None (occurrence: None)
  Receive Date: 20070404
  Receipt Date: 20060323
  Transmission Date: 20071010
  Serious: Yes (Other)
  Sender: FDA-Public Use
  Company Number: 060323-0000282

PATIENT
  Age: 12 Day
  Sex: Male

DRUGS (14)
  1. INDOCIN I.V. [Suspect]
     Indication: PATENT DUCTUS ARTERIOSUS
     Dosage: IV
     Route: 042
     Dates: start: 20060321
  2. INDOCIN I.V. [Suspect]
     Indication: PATENT DUCTUS ARTERIOSUS
     Dosage: IV
     Route: 042
     Dates: start: 20060322
  3. AMPICILLIN [Concomitant]
  4. GENTAMICIN [Concomitant]
  5. AMPHOTERICIN B [Concomitant]
  6. VANCOMYCIN HCL [Concomitant]
  7. CEFOTAXIME [Concomitant]
  8. SURFACTANT [Concomitant]
  9. LASIX [Concomitant]
  10. SODIUM BICARBONATE [Concomitant]
  11. DOPAMINE HCL [Concomitant]
  12. MORPHINE [Concomitant]
  13. VERSED [Concomitant]
  14. FENTANYL TRANSDERMAL SYSTEM [Concomitant]

REACTIONS (1)
  - ILEAL PERFORATION [None]
